FAERS Safety Report 7354129-9 (Version None)
Quarter: 2011Q1

REPORT INFORMATION
  Report Type: 
  Country: None (occurrence: None)
  Receive Date: 20110315
  Receipt Date: 20110310
  Transmission Date: 20110831
  Serious: Yes (Other)
  Sender: FDA-Public Use
  Company Number: SE-BRISTOL-MYERS SQUIBB COMPANY-15372790

PATIENT
  Age: 63 Year
  Sex: Male

DRUGS (5)
  1. PREDNISONE [Concomitant]
     Dosage: 1 DF = VARIED FROM 0- 25 MG
  2. ORENCIA [Suspect]
     Indication: RHEUMATOID ARTHRITIS
     Route: 042
     Dates: start: 20100527, end: 20101105
  3. ORENCIA [Suspect]
     Indication: SPONDYLITIS
     Route: 042
     Dates: start: 20100527, end: 20101105
  4. ORENCIA [Suspect]
     Indication: POLYARTHRITIS
     Route: 042
     Dates: start: 20100527, end: 20101105
  5. METHOTREXATE [Concomitant]

REACTIONS (4)
  - IRITIS [None]
  - OSTEOARTHRITIS [None]
  - OPTIC DISC DISORDER [None]
  - DRUG INEFFECTIVE [None]
